FAERS Safety Report 19712957 (Version 1)
Quarter: 2021Q3

REPORT INFORMATION
  Report Type: Spontaneous
  Country: US (occurrence: US)
  Receive Date: 20210817
  Receipt Date: 20210817
  Transmission Date: 20211014
  Serious: Yes (Death, Other)
  Sender: FDA-Public Use
  Company Number: NVSC2021US186117

PATIENT
  Age: 55 Year
  Sex: Male

DRUGS (2)
  1. RANITIDINE. [Suspect]
     Active Substance: RANITIDINE
     Indication: TRANSPLANT
     Dosage: 75 TO 150 MG, QD
     Route: 065
     Dates: start: 201503, end: 201703
  2. RANITIDINE. [Suspect]
     Active Substance: RANITIDINE
     Indication: TRANSPLANT
     Dosage: 75 TO 150 MG, QW
     Route: 065
     Dates: start: 201503, end: 201703

REACTIONS (5)
  - Inappropriate schedule of product administration [Unknown]
  - Product use in unapproved indication [Unknown]
  - Lung neoplasm malignant [Unknown]
  - Incorrect dose administered [Unknown]
  - Death [Fatal]

NARRATIVE: CASE EVENT DATE: 20160801
